FAERS Safety Report 15931276 (Version 2)
Quarter: 2019Q3

REPORT INFORMATION
  Report Type: Spontaneous
  Country: ES (occurrence: ES)
  Receive Date: 20190207
  Receipt Date: 20190927
  Transmission Date: 20191004
  Serious: Yes (Hospitalization, Other)
  Sender: FDA-Public Use
  Company Number: ES-AUROBINDO-AUR-APL-2019-006302

PATIENT
  Age: 33 Year
  Sex: Female

DRUGS (6)
  1. LORMETAZEPAM [Suspect]
     Active Substance: LORMETAZEPAM
     Indication: FIBROMYALGIA
     Dosage: 2 MILLIGRAM, ONCE A DAY
     Route: 065
  2. CITALOPRAM [Suspect]
     Active Substance: CITALOPRAM HYDROBROMIDE
     Indication: DEPRESSION
     Dosage: UNK
     Route: 065
  3. CITALOPRAM [Suspect]
     Active Substance: CITALOPRAM HYDROBROMIDE
     Indication: FIBROMYALGIA
  4. LORMETAZEPAM [Suspect]
     Active Substance: LORMETAZEPAM
     Indication: DEPRESSION
  5. DIAZEPAM. [Suspect]
     Active Substance: DIAZEPAM
     Indication: FIBROMYALGIA
     Dosage: 10 MILLIGRAM, 3 TIMES A DAY
     Route: 065
  6. DIAZEPAM. [Suspect]
     Active Substance: DIAZEPAM
     Indication: DEPRESSION

REACTIONS (3)
  - Depression [Unknown]
  - Withdrawal syndrome [Unknown]
  - Drug dependence [Unknown]

NARRATIVE: CASE EVENT DATE: 2008
